FAERS Safety Report 18743979 (Version 13)
Quarter: 2021Q3

REPORT INFORMATION
  Report Type: Spontaneous
  Country: US (occurrence: US)
  Receive Date: 20210115
  Receipt Date: 20210811
  Transmission Date: 20211014
  Serious: No
  Sender: FDA-Public Use
  Company Number: US-DSJP-DSU-2021-101245

PATIENT
  Age: 45 Year
  Sex: Female

DRUGS (2)
  1. TURALIO [Suspect]
     Active Substance: PEXIDARTINIB HYDROCHLORIDE
     Indication: NEOPLASM
     Dosage: 400 MG, BID
     Route: 048
     Dates: start: 20210104
  2. TURALIO [Suspect]
     Active Substance: PEXIDARTINIB HYDROCHLORIDE
     Dosage: 400 MG, BID
     Route: 048
     Dates: start: 20210104

REACTIONS (26)
  - Anxiety [Recovered/Resolved]
  - Skin discolouration [Unknown]
  - Haematochezia [Unknown]
  - Pallor [Unknown]
  - Eye pain [Recovered/Resolved]
  - Fatigue [Recovered/Resolved]
  - Eye swelling [Recovered/Resolved]
  - Hair colour changes [Recovered/Resolved]
  - Choking sensation [Unknown]
  - Depressed mood [Unknown]
  - Blood iron decreased [Unknown]
  - Pharyngitis [Unknown]
  - Chills [Recovered/Resolved]
  - Back pain [Unknown]
  - Nasal congestion [Recovered/Resolved]
  - Neuropathy peripheral [Unknown]
  - Dysphonia [Unknown]
  - Headache [Not Recovered/Not Resolved]
  - Peripheral swelling [Recovered/Resolved]
  - Product dose omission issue [Not Recovered/Not Resolved]
  - Swelling [Unknown]
  - Contusion [Not Recovered/Not Resolved]
  - Dysgeusia [Recovered/Resolved]
  - Haemorrhoids [Unknown]
  - Oropharyngeal pain [Recovered/Resolved]
  - Anaemia [Unknown]

NARRATIVE: CASE EVENT DATE: 2021
